FAERS Safety Report 8319888-7 (Version None)
Quarter: 2012Q2

REPORT INFORMATION
  Report Type: 
  Country: None (occurrence: None)
  Receive Date: 20120427
  Receipt Date: 20120413
  Transmission Date: 20120825
  Serious: Yes (Hospitalization)
  Sender: FDA-Public Use
  Company Number: JP-ELI_LILLY_AND_COMPANY-JP201111007966

PATIENT
  Age: 75 Year
  Sex: Female

DRUGS (3)
  1. FORTEO [Suspect]
     Dosage: UNK
     Route: 058
     Dates: start: 20111111
  2. INSULIN [Concomitant]
     Route: 058
  3. FORTEO [Suspect]
     Dosage: UNK
     Route: 058
     Dates: start: 20120301

REACTIONS (5)
  - DECREASED APPETITE [None]
  - NAUSEA [None]
  - ASTHENIA [None]
  - BACK PAIN [None]
  - COMPRESSION FRACTURE [None]
